FAERS Safety Report 7906851-0 (Version None)
Quarter: 2011Q4

REPORT INFORMATION
  Report Type: 
  Country: None (occurrence: None)
  Receive Date: 20111110
  Receipt Date: 20111104
  Transmission Date: 20120403
  Serious: Yes (Death, Hospitalization)
  Sender: FDA-Public Use
  Company Number: AU-PFIZER INC-2011241662

PATIENT
  Age: 50 Year
  Sex: Male

DRUGS (3)
  1. TORISEL [Suspect]
     Indication: RENAL CELL CARCINOMA
     Dosage: 25 MG, SINGLE
     Route: 042
     Dates: start: 20110926, end: 20110926
  2. LEVODOPA [Concomitant]
     Indication: PARKINSON'S DISEASE
     Route: 048
  3. ZOLEDRONIC ACID [Concomitant]
     Indication: HYPERCALCAEMIA
     Dosage: 4 MG, SINGLE
     Route: 042
     Dates: start: 20110919, end: 20110919

REACTIONS (5)
  - METASTATIC RENAL CELL CARCINOMA [None]
  - DISEASE PROGRESSION [None]
  - SALMONELLA BACTERAEMIA [None]
  - RENAL FAILURE [None]
  - DISSEMINATED INTRAVASCULAR COAGULATION [None]
